FAERS Safety Report 5398440-X (Version None)
Quarter: 2007Q3

REPORT INFORMATION
  Report Type: 
  Country: None (occurrence: None)
  Receive Date: 20070724
  Receipt Date: 20070717
  Transmission Date: 20080115
  Serious: Yes (Hospitalization)
  Sender: FDA-Public Use
  Company Number: 062-C5013-07070868

PATIENT
  Age: 73 Year
  Sex: Male
  Weight: 84 kg

DRUGS (8)
  1. CC-5013 (LENALIDOMIDE) (CAPSULES) [Suspect]
     Indication: MULTIPLE MYELOMA
     Dosage: 25 MG, DAILY, ORAL
     Route: 048
     Dates: start: 20070705, end: 20070717
  2. DEXAMETHASONE TAB [Suspect]
     Indication: MULTIPLE MYELOMA
     Dosage: 40 MG, D1-4
     Dates: start: 20070705
  3. BACTRIM DS [Concomitant]
  4. DIARONT (DIAROEN) [Concomitant]
  5. ASPIRIN [Concomitant]
  6. KEPPRA [Concomitant]
  7. CLONAZEPAM [Concomitant]
  8. LYRICA [Concomitant]

REACTIONS (1)
  - GRAND MAL CONVULSION [None]
